FAERS Safety Report 23050909 (Version 1)
Quarter: 2023Q4

REPORT INFORMATION
  Report Type: Spontaneous
  Country: US (occurrence: US)
  Receive Date: 20231010
  Receipt Date: 20231010
  Transmission Date: 20240109
  Serious: No
  Sender: FDA-Public Use
  Company Number: US-SA-SAC20231004000176

PATIENT
  Age: 11 Year
  Sex: Female
  Weight: 33 kg

DRUGS (10)
  1. DUPIXENT [Suspect]
     Active Substance: DUPILUMAB
     Indication: Dermatitis atopic
     Dosage: 200MG , QOW
     Route: 058
     Dates: start: 20210602
  2. DUPIXENT [Suspect]
     Active Substance: DUPILUMAB
     Dosage: 300MG , QOW
     Route: 058
  3. GUANFACINE [Concomitant]
     Active Substance: GUANFACINE
  4. HIZENTRA [Concomitant]
     Active Substance: HUMAN IMMUNOGLOBULIN G
  5. ACYCLOVIR [Concomitant]
     Active Substance: ACYCLOVIR
  6. FLUTICASONE [Concomitant]
     Active Substance: FLUTICASONE
  7. CLOBETASOL [Concomitant]
     Active Substance: CLOBETASOL
  8. RISPERIDONE [Concomitant]
     Active Substance: RISPERIDONE
  9. CLINDAMYCIN [Concomitant]
     Active Substance: CLINDAMYCIN
  10. VITAMINS NOS [Concomitant]
     Active Substance: VITAMINS

REACTIONS (2)
  - Pruritus [Unknown]
  - Therapeutic response shortened [Unknown]
